FAERS Safety Report 6419123-0 (Version None)
Quarter: 2009Q4

REPORT INFORMATION
  Report Type: 
  Country: None (occurrence: None)
  Receive Date: 20091029
  Receipt Date: 20091021
  Transmission Date: 20100525
  Serious: Yes (Other)
  Sender: FDA-Public Use
  Company Number: US-ROCHE-657087

PATIENT
  Sex: Female
  Weight: 67.1 kg

DRUGS (3)
  1. CAPECITABINE [Suspect]
     Dosage: PATIENT IS IN ONE WEEK OFF PERIOD
     Route: 048
     Dates: start: 20090811
  2. LEVOTHYROXINE SODIUM [Suspect]
     Indication: DRUG USE FOR UNKNOWN INDICATION
     Route: 065
  3. ZOMETA [Suspect]
     Indication: DRUG USE FOR UNKNOWN INDICATION
     Route: 065

REACTIONS (9)
  - ANXIETY [None]
  - BRADYCARDIA [None]
  - DIZZINESS [None]
  - FATIGUE [None]
  - HEART RATE DECREASED [None]
  - IRRITABILITY [None]
  - PALPITATIONS [None]
  - SYNCOPE [None]
  - TUMOUR MARKER INCREASED [None]
